FAERS Safety Report 24824845 (Version 2)
Quarter: 2025Q1

REPORT INFORMATION
  Report Type: Spontaneous
  Country: GB (occurrence: GB)
  Receive Date: 20250109
  Receipt Date: 20250116
  Transmission Date: 20250409
  Serious: Yes (Disabling, Other)
  Sender: MYLAN
  Company Number: GB-MHRA-WEBRADR-202501061438386060-RPVSH

PATIENT
  Age: 37 Year
  Sex: Female
  Weight: 83 kg

DRUGS (2)
  1. GABAPENTIN [Suspect]
     Active Substance: GABAPENTIN
     Indication: Pain
     Route: 001
     Dates: start: 20241105, end: 20241130
  2. AMITRIPTYLINE [Suspect]
     Active Substance: AMITRIPTYLINE
     Indication: Pain
     Route: 001
     Dates: start: 20241112, end: 20241219

REACTIONS (4)
  - Sensory loss [Not Recovered/Not Resolved]
  - Neuropathy peripheral [Unknown]
  - Dysphagia [Unknown]
  - Urinary retention [Unknown]

NARRATIVE: CASE EVENT DATE: 20241114
